FAERS Safety Report 5701947-6 (Version None)
Quarter: 2008Q2

REPORT INFORMATION
  Report Type: 
  Country: None (occurrence: None)
  Receive Date: 20080411
  Receipt Date: 20080403
  Transmission Date: 20081010
  Serious: Yes (Other)
  Sender: FDA-Public Use
  Company Number: PHEH2008US03516

PATIENT

DRUGS (1)
  1. TRILEPTAL [Suspect]
     Dosage: 300 MG, BID

REACTIONS (1)
  - BLOOD POTASSIUM INCREASED [None]
